FAERS Safety Report 23320074 (Version 4)
Quarter: 2024Q3

REPORT INFORMATION
  Report Type: Report from Study
  Country: US (occurrence: US)
  Receive Date: 20231220
  Receipt Date: 20240821
  Transmission Date: 20241017
  Serious: Yes (Hospitalization)
  Sender: AMNEAL
  Company Number: US-AMNEAL PHARMACEUTICALS-2023-AMRX-04403

PATIENT
  Age: 84 Year
  Sex: Male

DRUGS (15)
  1. OPICAPONE [Suspect]
     Active Substance: OPICAPONE
     Indication: Parkinson^s disease
     Dosage: 25 MILLIGRAM, QD (AT BEDTIME)
     Route: 048
     Dates: start: 20230405
  2. CARBIDOPA\LEVODOPA [Concomitant]
     Active Substance: CARBIDOPA\LEVODOPA
     Indication: Parkinson^s disease
     Dosage: 1 DOSAGE FORM, 7/DAY
     Route: 048
     Dates: start: 201602
  3. SINEMET [Concomitant]
     Active Substance: CARBIDOPA\LEVODOPA
     Indication: Parkinson^s disease
     Dosage: 1 TABLETS, BEDTIME
     Route: 048
     Dates: start: 20231205
  4. SINEMET [Concomitant]
     Active Substance: CARBIDOPA\LEVODOPA
     Dosage: 1.5 TABLETS, 4 /DAY
     Route: 048
     Dates: start: 20231205
  5. METOPROLOL [Concomitant]
     Active Substance: METOPROLOL
     Indication: Myocardial infarction
     Dosage: 25 MILLIGRAM, 1 /DAY
     Route: 048
     Dates: start: 2020
  6. METOPROLOL [Concomitant]
     Active Substance: METOPROLOL
     Indication: Hypertension
     Dosage: 25 MICROGRAM, AS NEEDED
     Route: 048
     Dates: start: 20231120
  7. ATORVASTATIN [Concomitant]
     Active Substance: ATORVASTATIN
     Indication: Hyperlipidaemia
     Dosage: 20 MILLIGRAM, QD
     Route: 048
     Dates: start: 2018
  8. SYNTHROID [Concomitant]
     Active Substance: LEVOTHYROXINE SODIUM
     Indication: Hypothyroidism
     Dosage: 25 MILLIGRAM, QD
     Route: 048
     Dates: start: 2021
  9. MIRTAZAPINE [Concomitant]
     Active Substance: MIRTAZAPINE
     Indication: Anxiety
     Dosage: 30 MILLIGRAM, QD
     Route: 048
     Dates: start: 2017
  10. MIRTAZAPINE [Concomitant]
     Active Substance: MIRTAZAPINE
     Indication: Depression
  11. PROBIOTICS NOS [Concomitant]
     Active Substance: PROBIOTICS NOS
     Indication: Product used for unknown indication
     Dosage: UNK
  12. PRAMIPEXOLE [Concomitant]
     Active Substance: PRAMIPEXOLE\PRAMIPEXOLE DIHYDROCHLORIDE
     Indication: Parkinson^s disease
     Dosage: 0.25 MILLIGRAM, 2 /DAY
     Route: 048
     Dates: start: 2016
  13. CYANOCOBALAMIN [Concomitant]
     Active Substance: CYANOCOBALAMIN
     Indication: Vitamin supplementation
     Dosage: 500 MICROGRAM, 2 /DAY
     Route: 048
     Dates: start: 2018
  14. ELIQUIS [Concomitant]
     Active Substance: APIXABAN
     Indication: Product used for unknown indication
     Dosage: 5 MILLIGRAM, 2 /DAY
     Route: 048
     Dates: start: 2020
  15. CHOLECALCIFEROL [Concomitant]
     Active Substance: CHOLECALCIFEROL
     Indication: Vitamin supplementation
     Dosage: 2 TABLETS, QD (1000 UNITS)
     Route: 048

REACTIONS (10)
  - Staphylococcal infection [Recovered/Resolved]
  - Dementia [Unknown]
  - Osteoarthritis [Unknown]
  - Cough [Unknown]
  - Constipation [Unknown]
  - Hypotension [Unknown]
  - Agitation [Unknown]
  - Prescribed underdose [Unknown]
  - Product use issue [Unknown]
  - Product dose omission issue [Unknown]

NARRATIVE: CASE EVENT DATE: 20230405
